FAERS Safety Report 7107364-9 (Version None)
Quarter: 2010Q4

REPORT INFORMATION
  Report Type: 
  Country: None (occurrence: None)
  Receive Date: 20101112
  Receipt Date: 20101112
  Transmission Date: 20110411
  Serious: Yes (Hospitalization)
  Sender: FDA-Public Use
  Company Number: None

PATIENT
  Sex: Female
  Weight: 84.369 kg

DRUGS (2)
  1. AVASTIN [Suspect]
     Indication: ADJUVANT THERAPY
     Dosage: 15 MG/KG EVERY 3 WEEKS IV DRIP
     Route: 041
     Dates: start: 20100526, end: 20101110
  2. AVASTIN [Suspect]
     Indication: BREAST CANCER
     Dosage: 15 MG/KG EVERY 3 WEEKS IV DRIP
     Route: 041
     Dates: start: 20100526, end: 20101110

REACTIONS (8)
  - BLOOD PRESSURE INADEQUATELY CONTROLLED [None]
  - BLOOD PRESSURE INCREASED [None]
  - DYSPNOEA [None]
  - ERYTHEMA [None]
  - FEELING ABNORMAL [None]
  - FLUSHING [None]
  - PRURITUS [None]
  - URTICARIA [None]
